FAERS Safety Report 5460893-6 (Version None)
Quarter: 2007Q3

REPORT INFORMATION
  Report Type: 
  Country: None (occurrence: None)
  Receive Date: 20070827
  Receipt Date: 20070430
  Transmission Date: 20080115
  Serious: Yes (Other)
  Sender: FDA-Public Use
  Company Number: 2007031012

PATIENT
  Age: 79 Year

DRUGS (1)
  1. VFEND [Suspect]

REACTIONS (2)
  - RENAL FAILURE [None]
  - SEPSIS [None]
